FAERS Safety Report 5512236-7 (Version None)
Quarter: 2007Q4

REPORT INFORMATION
  Report Type: 
  Country: None (occurrence: None)
  Receive Date: 20071112
  Receipt Date: 20071106
  Transmission Date: 20080405
  Serious: Yes (Other)
  Sender: FDA-Public Use
  Company Number: DE-WYE-G00568707

PATIENT
  Sex: Female

DRUGS (1)
  1. VENLAFAXINE HCL [Suspect]
     Dosage: DOSE WAS INCREASED UP TO 300 MG PER DAY AND THAN REDUCED IN STEPS TILL IT WAS WITHDRAWN
     Route: 048
     Dates: start: 20070601, end: 20071105

REACTIONS (5)
  - DRUG INEFFECTIVE [None]
  - DRUG WITHDRAWAL SYNDROME [None]
  - NEUROLEPTIC MALIGNANT SYNDROME [None]
  - OCULOGYRIC CRISIS [None]
  - SPEECH DISORDER [None]
